FAERS Safety Report 8226325-X (Version None)
Quarter: 2012Q1

REPORT INFORMATION
  Report Type: 
  Country: None (occurrence: None)
  Receive Date: 20120307
  Receipt Date: 20100903
  Transmission Date: 20120608
  Serious: Yes (Death, Hospitalization, Other)
  Sender: FDA-Public Use
  Company Number: PHHY2010US49472

PATIENT
  Age: 68 Year
  Sex: Male
  Weight: 71.8 kg

DRUGS (1)
  1. AFINITOR [Suspect]
     Indication: RENAL CELL CARCINOMA
     Dosage: 10 MG, DAILY, ORAL
     Route: 048
     Dates: start: 20100714, end: 20100727

REACTIONS (6)
  - NEOPLASM MALIGNANT [None]
  - MALAISE [None]
  - PLEURAL EFFUSION [None]
  - SWELLING [None]
  - DYSPNOEA [None]
  - ASTHENIA [None]
